FAERS Safety Report 9658914 (Version 1)
Quarter: 2013Q4

REPORT INFORMATION
  Report Type: Report from Study
  Country: FR (occurrence: FR)
  Receive Date: 20131030
  Receipt Date: 20131030
  Transmission Date: 20140711
  Serious: Yes (Other)
  Sender: FDA-Public Use
  Company Number: PHHY2013FR122220

PATIENT
  Age: 79 Year
  Sex: Female

DRUGS (12)
  1. ACLASTA/ZOLEDRONATE [Suspect]
     Indication: OSTEOPOROSIS
     Dosage: UNK
     Route: 042
     Dates: start: 20110317
  2. LIORESAL [Concomitant]
     Dosage: UNK
     Dates: start: 1995
  3. FUROSEMIDE [Concomitant]
     Dosage: UNK
     Dates: start: 1995
  4. LIPANTHYL [Concomitant]
     Dosage: UNK
     Dates: start: 1995
  5. TEMERIT [Concomitant]
     Dosage: UNK
     Dates: start: 2009
  6. LYRICA [Concomitant]
     Dosage: UNK
     Dates: start: 2011, end: 201109
  7. ATACAND [Concomitant]
     Dosage: UNK
     Dates: start: 2005
  8. VITAMIN D [Concomitant]
     Dosage: UNK
     Dates: start: 2011
  9. INNOHEP [Concomitant]
     Dosage: UNK
     Dates: start: 2011, end: 201108
  10. PREVPAC [Concomitant]
     Dosage: UNK
     Dates: start: 2011, end: 201205
  11. LAMALINE [Concomitant]
     Dosage: UNK
     Dates: start: 2011, end: 201111
  12. PRADAXA [Concomitant]
     Dosage: UNK
     Dates: start: 2012

REACTIONS (1)
  - Rib fracture [Unknown]
